FAERS Safety Report 6782073-4 (Version None)
Quarter: 2010Q2

REPORT INFORMATION
  Report Type: 
  Country: None (occurrence: None)
  Receive Date: 20100621
  Receipt Date: 20100608
  Transmission Date: 20101027
  Serious: Yes (Hospitalization)
  Sender: FDA-Public Use
  Company Number: B0660728A

PATIENT
  Sex: Female

DRUGS (4)
  1. AUGMENTIN '125' [Suspect]
     Indication: DRUG USE FOR UNKNOWN INDICATION
     Dosage: 1G PER DAY
     Route: 048
     Dates: start: 20100506, end: 20100510
  2. LEVOTHYROXINE SODIUM [Concomitant]
  3. ROSUVASTATIN [Concomitant]
  4. FOSAVANCE [Concomitant]

REACTIONS (5)
  - ALANINE AMINOTRANSFERASE INCREASED [None]
  - BLOOD LACTATE DEHYDROGENASE ABNORMAL [None]
  - HEPATOTOXICITY [None]
  - PANCREATIC DISORDER [None]
  - RED BLOOD CELL SEDIMENTATION RATE INCREASED [None]
